FAERS Safety Report 24294034 (Version 1)
Quarter: 2024Q3

REPORT INFORMATION
  Report Type: Spontaneous
  Country: US (occurrence: US)
  Receive Date: 20240906
  Receipt Date: 20240906
  Transmission Date: 20241016
  Serious: No
  Sender: PFIZER
  Company Number: US-PFIZER INC-202400250456

PATIENT
  Age: 74 Year
  Sex: Male
  Weight: 73.03 kg

DRUGS (1)
  1. PAXLOVID [Suspect]
     Active Substance: NIRMATRELVIR\RITONAVIR
     Indication: COVID-19 treatment
     Dosage: RENAL DOSING
     Dates: start: 202309

REACTIONS (1)
  - Dysgeusia [Unknown]
